FAERS Safety Report 17540031 (Version 1)
Quarter: 2020Q1

REPORT INFORMATION
  Report Type: Spontaneous
  Country: US (occurrence: US)
  Receive Date: 20200313
  Receipt Date: 20200313
  Transmission Date: 20200409
  Serious: No
  Sender: FDA-Public Use
  Company Number: US-SA-2020SA064043

PATIENT
  Age: 78 Year
  Sex: Female

DRUGS (1)
  1. ELITEK [Suspect]
     Active Substance: RASBURICASE
     Indication: NON-HODGKIN^S LYMPHOMA
     Dosage: 6 MG, QW
     Dates: start: 20200129, end: 20200129

REACTIONS (1)
  - Platelet count increased [Unknown]
